FAERS Safety Report 6037274-X (Version None)
Quarter: 2009Q1

REPORT INFORMATION
  Report Type: 
  Country: None (occurrence: None)
  Receive Date: 20090114
  Receipt Date: 20090112
  Transmission Date: 20090719
  Serious: Yes (Hospitalization)
  Sender: FDA-Public Use
  Company Number: B0537767A

PATIENT
  Age: 70 Year
  Sex: Male

DRUGS (7)
  1. VENTOLIN [Suspect]
     Indication: ASTHMA
     Dosage: 100MCG AS REQUIRED
     Route: 055
  2. SERETIDE [Suspect]
     Indication: ASTHMA
     Dosage: 2PUFF TWICE PER DAY
     Route: 055
  3. SPIRIVA [Suspect]
     Dosage: 18MG PER DAY
     Route: 055
  4. DIPYRIDAMOLE [Suspect]
     Indication: DRUG USE FOR UNKNOWN INDICATION
     Route: 048
  5. OMEPRAZOLE [Suspect]
     Dosage: 20MG AT NIGHT
     Route: 048
  6. IRBESARTAN [Suspect]
     Indication: HYPERTENSION
     Dosage: 300MG UNKNOWN
     Route: 048
  7. SIMVASTATIN [Suspect]
     Dosage: 40MG AT NIGHT
     Route: 048

REACTIONS (2)
  - ASTHMA [None]
  - COUGH [None]
